FAERS Safety Report 15400355 (Version 3)
Quarter: 2018Q4

REPORT INFORMATION
  Report Type: Report from Study
  Country: JP (occurrence: JP)
  Receive Date: 20180919
  Receipt Date: 20181221
  Transmission Date: 20190204
  Serious: Yes (Life-Threatening, Disabling, Other)
  Sender: FDA-Public Use
  Company Number: JP-ALXN-A201802742AA

PATIENT
  Age: 1 Year
  Sex: Female

DRUGS (1)
  1. STRENSIQ [Suspect]
     Active Substance: ASFOTASE ALFA
     Indication: HYPOPHOSPHATASIA
     Dosage: 2 MG/KG, TIW
     Route: 058
     Dates: start: 20161017, end: 20180928

REACTIONS (8)
  - Encephalopathy [Unknown]
  - Tooth loss [Unknown]
  - Tooth loss [Not Recovered/Not Resolved]
  - Dentinogenesis imperfecta [Not Recovered/Not Resolved]
  - Tooth loss [Not Recovered/Not Resolved]
  - Febrile convulsion [Not Recovered/Not Resolved]
  - Depressed level of consciousness [Not Recovered/Not Resolved]
  - Brain oedema [Not Recovered/Not Resolved]

NARRATIVE: CASE EVENT DATE: 201802
